FAERS Safety Report 24849620 (Version 2)
Quarter: 2025Q1

REPORT INFORMATION
  Report Type: Spontaneous
  Country: US (occurrence: US)
  Receive Date: 20250116
  Receipt Date: 20250127
  Transmission Date: 20250408
  Serious: No
  Sender: ROCHE
  Company Number: US-ROCHE-10000178117

PATIENT
  Sex: Female

DRUGS (1)
  1. XOFLUZA [Suspect]
     Active Substance: BALOXAVIR MARBOXIL
     Indication: Influenza
     Route: 065

REACTIONS (2)
  - Drug ineffective [Unknown]
  - No adverse event [Unknown]
